FAERS Safety Report 5678411-6 (Version None)
Quarter: 2008Q1

REPORT INFORMATION
  Report Type: 
  Country: None (occurrence: None)
  Receive Date: 20080320
  Receipt Date: 20080306
  Transmission Date: 20080703
  Serious: Yes (Hospitalization)
  Sender: FDA-Public Use
  Company Number: US022905

PATIENT
  Age: 53 Year
  Sex: Male
  Weight: 87.0906 kg

DRUGS (5)
  1. PROVIGIL [Suspect]
     Indication: SLEEP APNOEA SYNDROME
     Dosage: 200 MG BID ORAL
     Route: 048
     Dates: start: 20071201, end: 20080101
  2. PROVIGIL [Suspect]
     Indication: SOMNOLENCE
     Dosage: 200 MG BID ORAL
     Route: 048
     Dates: start: 20071201, end: 20080101
  3. PROPRANOLOL [Concomitant]
  4. LISINOPRIL [Concomitant]
  5. HYDROCHLOROTHIAZIDE [Concomitant]

REACTIONS (5)
  - HALLUCINATIONS, MIXED [None]
  - PSYCHOTIC DISORDER [None]
  - RASH [None]
  - RENAL FAILURE ACUTE [None]
  - RHABDOMYOLYSIS [None]
